FAERS Safety Report 10701100 (Version 3)
Quarter: 2015Q1

REPORT INFORMATION
  Report Type: Spontaneous
  Country: US (occurrence: US)
  Receive Date: 20150109
  Receipt Date: 20150217
  Transmission Date: 20150721
  Serious: Yes (Hospitalization)
  Sender: FDA-Public Use
  Company Number: US-JNJFOC-20150104308

PATIENT
  Age: 59 Year
  Sex: Male

DRUGS (4)
  1. FLONASE [Concomitant]
     Active Substance: FLUTICASONE PROPIONATE
  2. ACYCLOVIR. [Concomitant]
     Active Substance: ACYCLOVIR
  3. IMBRUVICA [Suspect]
     Active Substance: IBRUTINIB
     Indication: LYMPHADENOPATHY
     Route: 065
     Dates: start: 201408, end: 20141229
  4. IMBRUVICA [Suspect]
     Active Substance: IBRUTINIB
     Indication: CHRONIC LYMPHOCYTIC LEUKAEMIA
     Route: 065
     Dates: start: 201408, end: 20141229

REACTIONS (10)
  - Confusional state [Recovered/Resolved]
  - Arthralgia [Unknown]
  - Fatigue [Unknown]
  - Pulmonary oedema [Unknown]
  - Aphonia [Unknown]
  - Ventricular fibrillation [Recovered/Resolved]
  - Pyrexia [Unknown]
  - Thrombocytopenia [Unknown]
  - Staphylococcus test positive [Unknown]
  - Respiratory failure [Unknown]

NARRATIVE: CASE EVENT DATE: 2014
